FAERS Safety Report 4595730-5 (Version None)
Quarter: 2005Q1

REPORT INFORMATION
  Report Type: 
  Country: None (occurrence: None)
  Receive Date: 20050224
  Receipt Date: 20050211
  Transmission Date: 20050727
  Serious: Yes (Death, Congenital Anomaly, Other)
  Sender: FDA-Public Use
  Company Number: 2005EU000256

PATIENT

DRUGS (1)
  1. PROTOPIC [Suspect]
     Indication: DERMATITIS ATOPIC
     Dosage: 1.00%, BID; TRANSPLACENTAL
     Route: 064

REACTIONS (4)
  - ABORTION SPONTANEOUS [None]
  - AUTOSOMAL CHROMOSOME ANOMALY [None]
  - DRUG EXPOSURE DURING PREGNANCY [None]
  - STILLBIRTH [None]
